FAERS Safety Report 13462599 (Version 3)
Quarter: 2017Q3

REPORT INFORMATION
  Report Type: Spontaneous
  Country: US (occurrence: US)
  Receive Date: 20170420
  Receipt Date: 20170831
  Transmission Date: 20171127
  Serious: Yes (Hospitalization)
  Sender: FDA-Public Use
  Company Number: US-IMPAX LABORATORIES, INC-2017-IPXL-00570

PATIENT
  Age: 76 Year
  Sex: Female
  Weight: 67 kg

DRUGS (6)
  1. CARBIDOPA-LEVODOPA ER [Suspect]
     Active Substance: CARBIDOPA\LEVODOPA
     Indication: PARKINSON^S DISEASE
     Dosage: 25/100 MG, 2 DF, QID
     Route: 065
  2. RYTARY [Suspect]
     Active Substance: CARBIDOPA\LEVODOPA
     Indication: PARKINSON^S DISEASE
     Dosage: 48.75/195MG, 1 DF, TID
     Route: 048
     Dates: start: 20170225
  3. LISINOPRIL. [Concomitant]
     Active Substance: LISINOPRIL
     Indication: HYPERTENSION
     Dosage: UNK
     Route: 065
  4. SINEMET [Suspect]
     Active Substance: CARBIDOPA\LEVODOPA
     Indication: PARKINSON^S DISEASE
     Dosage: 1 TABLET AT 8:30AM, 1 TABLET AT 12PM, 1 TABLET AT 4:30PM, 1 TABLET AT 10:30PM AND 2 TABLETS AT 4AM
     Route: 048
  5. SINEMET [Suspect]
     Active Substance: CARBIDOPA\LEVODOPA
     Dosage: 25/100 MG
  6. RYTARY [Suspect]
     Active Substance: CARBIDOPA\LEVODOPA
     Dosage: 48.75/195MG, 3 DF AT 8:30AM, 1 DF AT 12PM, 2 DF AT 4:30PM, 2 DF AT 10:30PM, 1 DF AT 4AM
     Route: 048

REACTIONS (3)
  - Upper limb fracture [Recovering/Resolving]
  - Drug effect incomplete [Unknown]
  - Fall [Unknown]

NARRATIVE: CASE EVENT DATE: 20170414
